FAERS Safety Report 9395131 (Version 1)
Quarter: 2013Q3

REPORT INFORMATION
  Report Type: Spontaneous
  Country: US (occurrence: US)
  Receive Date: 20130711
  Receipt Date: 20130711
  Transmission Date: 20140515
  Serious: No
  Sender: FDA-Public Use
  Company Number: US-B.I. PHARMACEUTICALS,INC./RIDGEFIELD-2013-BI-19843BP

PATIENT
  Age: 70 Year
  Sex: Female
  Weight: 88 kg

DRUGS (10)
  1. PRADAXA [Suspect]
     Indication: CEREBROVASCULAR ACCIDENT PROPHYLAXIS
     Dosage: 300 MG
     Route: 048
     Dates: start: 201302
  2. PRADAXA [Suspect]
     Indication: ATRIAL FIBRILLATION
  3. GLIPIZIDE [Concomitant]
     Indication: TYPE 2 DIABETES MELLITUS
     Dosage: 5 MG
     Route: 048
     Dates: start: 201202
  4. METFORMIN [Concomitant]
     Indication: TYPE 2 DIABETES MELLITUS
     Dosage: 500 MG
     Route: 048
     Dates: start: 201202
  5. METOPROLOL [Concomitant]
     Indication: ATRIAL FIBRILLATION
     Dosage: 75 MG
     Route: 048
     Dates: start: 201302
  6. METOPROLOL [Concomitant]
     Dosage: 50 MG
     Route: 048
     Dates: start: 201302
  7. AMIODARONE [Concomitant]
     Indication: ATRIAL FIBRILLATION
     Dosage: 100 MG
     Route: 048
     Dates: start: 201302
  8. HYDROCHLOROTHIAZIDE [Concomitant]
     Indication: HYPERTENSION
     Dosage: 25 MG
     Route: 048
  9. ATORVASTATIN [Concomitant]
     Indication: BLOOD CHOLESTEROL INCREASED
     Dosage: 40 MG
     Route: 048
  10. SYNTHROID [Concomitant]
     Indication: HYPOTHYROIDISM
     Dosage: 50 MCG
     Route: 048

REACTIONS (1)
  - Insomnia [Not Recovered/Not Resolved]
